FAERS Safety Report 16892624 (Version 4)
Quarter: 2020Q1

REPORT INFORMATION
  Report Type: Report from Study
  Country: GB (occurrence: GB)
  Receive Date: 20191007
  Receipt Date: 20200313
  Transmission Date: 20200409
  Serious: Yes (Hospitalization)
  Sender: FDA-Public Use
  Company Number: GB-CELGENEUS-GBR-20190400846

PATIENT
  Age: 71 Year
  Sex: Female

DRUGS (8)
  1. DEXAMETHASONE. [Suspect]
     Active Substance: DEXAMETHASONE
     Dosage: 40 MILLIGRAM
     Route: 048
     Dates: start: 20190318, end: 20190408
  2. POMALIDOMIDE [Suspect]
     Active Substance: POMALIDOMIDE
     Dosage: 4 MILLIGRAM
     Route: 048
     Dates: start: 20190218, end: 20190311
  3. POMALIDOMIDE [Suspect]
     Active Substance: POMALIDOMIDE
     Indication: PLASMA CELL MYELOMA
     Dosage: 4 MILLIGRAM
     Route: 048
     Dates: start: 20170904, end: 20170924
  4. POMALIDOMIDE [Suspect]
     Active Substance: POMALIDOMIDE
     Dosage: 4 MILLIGRAM
     Route: 048
     Dates: start: 20190318, end: 20190408
  5. DEXAMETHASONE. [Suspect]
     Active Substance: DEXAMETHASONE
     Indication: PLASMA CELL MYELOMA
     Dosage: 40 MILLIGRAM
     Route: 048
     Dates: start: 20170904, end: 20170925
  6. FLUCONAZOLE. [Concomitant]
     Active Substance: FLUCONAZOLE
     Indication: INFECTION PROPHYLAXIS
     Dosage: 50 MILLIGRAM
     Route: 048
  7. DEXAMETHASONE. [Suspect]
     Active Substance: DEXAMETHASONE
     Dosage: 40 MILLIGRAM
     Route: 048
     Dates: start: 20190218, end: 20190311
  8. ACYCLOVIR. [Concomitant]
     Active Substance: ACYCLOVIR
     Indication: INFECTION PROPHYLAXIS
     Dosage: 400 MILLIGRAM
     Route: 065

REACTIONS (1)
  - Lower respiratory tract infection [Recovered/Resolved]

NARRATIVE: CASE EVENT DATE: 20190305
